FAERS Safety Report 5711983-1 (Version None)
Quarter: 2008Q2

REPORT INFORMATION
  Report Type: 
  Country: None (occurrence: None)
  Receive Date: 20080421
  Receipt Date: 20080408
  Transmission Date: 20081010
  Serious: Yes (Other)
  Sender: FDA-Public Use
  Company Number: ES-GENENTECH-259319

PATIENT
  Age: 67 Year
  Sex: Female

DRUGS (6)
  1. HERCEPTIN [Suspect]
     Indication: BREAST CANCER
     Dosage: 180 MG, 1/WEEK
     Route: 042
     Dates: start: 20080103
  2. TAXOL [Suspect]
     Indication: BREAST CANCER
     Dosage: 180 MG, 1/WEEK
     Route: 042
     Dates: start: 20080103, end: 20080214
  3. RANITIDINE HCL [Concomitant]
     Indication: DRUG USE FOR UNKNOWN INDICATION
     Dates: start: 20080103, end: 20080214
  4. DEXAMETASON [Concomitant]
     Indication: DRUG USE FOR UNKNOWN INDICATION
     Dates: start: 20080103, end: 20080214
  5. DEXCHLORPHENIRAMINE [Concomitant]
     Indication: DRUG USE FOR UNKNOWN INDICATION
     Dates: start: 20080103, end: 20080214
  6. ONDANSETRON [Concomitant]
     Indication: DRUG USE FOR UNKNOWN INDICATION
     Dates: start: 20080103, end: 20080214

REACTIONS (2)
  - CHEMICAL BURN OF SKIN [None]
  - NEUROPATHY PERIPHERAL [None]
